FAERS Safety Report 10520432 (Version 1)
Quarter: 2014Q4

REPORT INFORMATION
  Report Type: Spontaneous
  Country: US (occurrence: US)
  Receive Date: 20141015
  Receipt Date: 20141015
  Transmission Date: 20150528
  Serious: Yes (Other)
  Sender: FDA-Public Use
  Company Number: US-GLAXOSMITHKLINE-US2014GSK005692

PATIENT
  Sex: Female

DRUGS (7)
  1. LAMICTAL [Suspect]
     Active Substance: LAMOTRIGINE
     Dosage: 350-400 MG DAILY
     Route: 048
     Dates: start: 201409
  2. TYLENOL [Concomitant]
     Active Substance: ACETAMINOPHEN
  3. LAMICTAL [Suspect]
     Active Substance: LAMOTRIGINE
     Dosage: 300 MG, BID
     Route: 048
     Dates: start: 2014
  4. ZOLOFT [Concomitant]
     Active Substance: SERTRALINE HYDROCHLORIDE
  5. KLONOPIN [Concomitant]
     Active Substance: CLONAZEPAM
  6. LAMICTAL [Suspect]
     Active Substance: LAMOTRIGINE
     Indication: EPILEPSY
     Dosage: UNK
     Route: 048
     Dates: start: 2012
  7. LAMICTAL [Suspect]
     Active Substance: LAMOTRIGINE
     Dosage: 300 MG, BID
     Route: 048
     Dates: start: 201409

REACTIONS (9)
  - Petit mal epilepsy [Recovering/Resolving]
  - Incorrect dosage administered [Recovered/Resolved]
  - Nausea [Recovering/Resolving]
  - Asthenia [Recovering/Resolving]
  - Flashback [Not Recovered/Not Resolved]
  - Hallucination [Recovering/Resolving]
  - Aura [Recovering/Resolving]
  - Photopsia [Recovering/Resolving]
  - Headache [Recovering/Resolving]
